FAERS Safety Report 6818154-6 (Version None)
Quarter: 2010Q3

REPORT INFORMATION
  Report Type: 
  Country: None (occurrence: None)
  Receive Date: 20100706
  Receipt Date: 20100621
  Transmission Date: 20110219
  Serious: Yes (Other)
  Sender: FDA-Public Use
  Company Number: DE-CEPHALON-2010002808

PATIENT
  Sex: Male
  Weight: 77 kg

DRUGS (12)
  1. TREANDA [Suspect]
     Indication: MANTLE CELL LYMPHOMA
     Route: 042
     Dates: start: 20091110, end: 20091110
  2. TREANDA [Suspect]
     Route: 042
     Dates: start: 20091201, end: 20091202
  3. TREANDA [Suspect]
     Route: 042
     Dates: start: 20091221, end: 20091222
  4. TREANDA [Suspect]
     Route: 042
     Dates: start: 20100111, end: 20100112
  5. TREANDA [Suspect]
     Route: 042
     Dates: start: 20100202, end: 20100203
  6. RITUXIMAB [Suspect]
     Indication: MANTLE CELL LYMPHOMA
     Route: 042
     Dates: start: 20091110, end: 20091110
  7. FORTECORTIN [Suspect]
     Indication: ACUTE MYOCARDIAL INFARCTION
     Route: 042
     Dates: start: 20091110
  8. NAVOBAN [Concomitant]
  9. ZOFRAN [Concomitant]
  10. METOPROLOL TARTRATE [Concomitant]
  11. RAMIPRIL [Concomitant]
  12. INSULIN [Concomitant]

REACTIONS (4)
  - CIRCULATORY COLLAPSE [None]
  - DEPRESSED LEVEL OF CONSCIOUSNESS [None]
  - FALL [None]
  - SYNCOPE [None]
